FAERS Safety Report 18399518 (Version 3)
Quarter: 2025Q1

REPORT INFORMATION
  Report Type: Spontaneous
  Country: IT (occurrence: IT)
  Receive Date: 20201019
  Receipt Date: 20250317
  Transmission Date: 20250409
  Serious: Yes (Life-Threatening, Hospitalization, Other)
  Sender: ALEXION PHARMACEUTICALS
  Company Number: None

PATIENT
  Age: 60 Year

DRUGS (11)
  1. TICAGRELOR [Interacting]
     Active Substance: TICAGRELOR
     Indication: Acute coronary syndrome
  2. TICAGRELOR [Interacting]
     Active Substance: TICAGRELOR
     Indication: Antiplatelet therapy
     Dosage: 80 MILLIGRAM, QD
  3. MORPHINE [Interacting]
     Active Substance: MORPHINE
     Indication: Product used for unknown indication
  4. MORPHINE [Interacting]
     Active Substance: MORPHINE
     Indication: Antiplatelet therapy
  5. EVEROLIMUS [Concomitant]
     Active Substance: EVEROLIMUS
     Indication: Acute coronary syndrome
     Route: 065
  6. ASPIRIN [Concomitant]
     Active Substance: ASPIRIN
     Indication: Product used for unknown indication
  7. ASPIRIN [Concomitant]
     Active Substance: ASPIRIN
     Indication: Antiplatelet therapy
  8. TIROFIBAN [Concomitant]
     Active Substance: TIROFIBAN
  9. RAMIPRIL [Concomitant]
     Active Substance: RAMIPRIL
     Indication: Product used for unknown indication
     Dosage: 5 MILLIGRAM, QD
  10. BISOPROLOL [Concomitant]
     Active Substance: BISOPROLOL
     Indication: Product used for unknown indication
     Dosage: 2.5 MILLIGRAM, QD
  11. ATORVASTATIN [Concomitant]
     Active Substance: ATORVASTATIN
     Dosage: 80 MILLIGRAM, QD
     Route: 065

REACTIONS (4)
  - Vascular stent thrombosis [Recovered/Resolved]
  - Drug interaction [Unknown]
  - Rectal haemorrhage [Recovered/Resolved]
  - Colitis ischaemic [Recovered/Resolved]
